FAERS Safety Report 8037780-2 (Version None)
Quarter: 2012Q1

REPORT INFORMATION
  Report Type: 
  Country: None (occurrence: None)
  Receive Date: 20120111
  Receipt Date: 20120102
  Transmission Date: 20120608
  Serious: Yes (Death)
  Sender: FDA-Public Use
  Company Number: US-BAYER-2012-002152

PATIENT
  Age: 58 Year
  Sex: Female

DRUGS (7)
  1. CARDIAC GLYCOSIDE [Suspect]
     Route: 048
  2. LEVOTHYROXINE SODIUM [Suspect]
     Route: 048
  3. DIPHENHYDRAMINE HCL [Suspect]
     Route: 048
  4. SERUM LIPID REDUCING AGENTS [Suspect]
     Route: 048
  5. CALCIUM CHANNEL BLOCKERS [Suspect]
     Route: 048
  6. CARPROFEN [Suspect]
     Route: 048
  7. BENZODIAZEPINE [Suspect]
     Route: 048

REACTIONS (1)
  - TOXICITY TO VARIOUS AGENTS [None]
